FAERS Safety Report 7403544-3 (Version None)
Quarter: 2011Q2

REPORT INFORMATION
  Report Type: 
  Country: None (occurrence: None)
  Receive Date: 20110408
  Receipt Date: 20110401
  Transmission Date: 20111010
  Serious: Yes (Other)
  Sender: FDA-Public Use
  Company Number: GB-MERCK-1104GBR00012

PATIENT
  Sex: Female

DRUGS (10)
  1. LANSOPRAZOLE [Concomitant]
     Route: 065
  2. PREDNISOLONE [Concomitant]
     Route: 048
  3. CALCIUM CARBONATE AND CHOLECALCIFEROL [Concomitant]
     Route: 048
     Dates: start: 20100714
  4. METFORMIN [Concomitant]
     Route: 065
  5. PIOGLITAZONE HYDROCHLORIDE [Concomitant]
     Route: 065
  6. CORTICOSTEROIDS (UNSPECIFIED) [Concomitant]
     Indication: POLYMYALGIA RHEUMATICA
     Route: 065
  7. FOSAMAX [Suspect]
     Indication: STEROID THERAPY
     Route: 048
     Dates: start: 20100712, end: 20100728
  8. ATORVASTATIN [Concomitant]
     Route: 065
  9. VASOTEC [Concomitant]
     Route: 048
  10. VALSARTAN [Concomitant]
     Route: 065

REACTIONS (5)
  - BACK PAIN [None]
  - CHEST DISCOMFORT [None]
  - DIZZINESS [None]
  - PALPITATIONS [None]
  - DYSPNOEA [None]
